FAERS Safety Report 9222763 (Version 1)
Quarter: 2013Q2

REPORT INFORMATION
  Report Type: Report from Study
  Country: GB (occurrence: GB)
  Receive Date: 20130410
  Receipt Date: 20130410
  Transmission Date: 20140414
  Serious: Yes (Hospitalization)
  Sender: FDA-Public Use
  Company Number: GB-009507513-1304GBR002651

PATIENT
  Age: 86 Year
  Sex: Male

DRUGS (2)
  1. VORINOSTAT [Suspect]
     Indication: PLASMA CELL MYELOMA
     Dosage: 200 MG, DAYS 1-7 AND 15-21
     Route: 048
     Dates: start: 20121109, end: 20130313
  2. LENALIDOMIDE [Suspect]
     Indication: PLASMA CELL MYELOMA
     Dosage: 10 MG, (21 DAYS OUT OF 28)
     Route: 048
     Dates: start: 20121119, end: 20130313

REACTIONS (1)
  - Neutropenic sepsis [Recovered/Resolved]
